FAERS Safety Report 7225616-9 (Version None)
Quarter: 2011Q1

REPORT INFORMATION
  Report Type: 
  Country: None (occurrence: None)
  Receive Date: 20110107
  Receipt Date: 20110107
  Transmission Date: 20110831
  Serious: Yes (Life-Threatening)
  Sender: FDA-Public Use
  Company Number: None

PATIENT
  Sex: Female

DRUGS (2)
  1. FLUOXETINE [Suspect]
     Indication: POST-TRAUMATIC STRESS DISORDER
     Dosage: 20MG 1 PO DAILY PO
     Route: 048
     Dates: start: 20101101
  2. PROZAC [Concomitant]

REACTIONS (2)
  - PRODUCT SUBSTITUTION ISSUE [None]
  - THERAPEUTIC RESPONSE DECREASED [None]
